FAERS Safety Report 24800618 (Version 1)
Quarter: 2025Q1

REPORT INFORMATION
  Report Type: Spontaneous
  Country: GB (occurrence: GB)
  Receive Date: 20250102
  Receipt Date: 20250102
  Transmission Date: 20250409
  Serious: Yes (Hospitalization, Other)
  Sender: TORRENT PHARMA INC.
  Company Number: None

PATIENT
  Age: 64 Year
  Sex: Male
  Weight: 60 kg

DRUGS (5)
  1. LAMOTRIGINE [Suspect]
     Active Substance: LAMOTRIGINE
     Indication: Epilepsy
     Dosage: 50MG TWICE DAILY
     Route: 065
     Dates: start: 20240701
  2. VALPROATE SODIUM [Suspect]
     Active Substance: VALPROATE SODIUM
     Indication: Epilepsy
     Dosage: 300MG TWICE DAILY
     Route: 065
  3. ASPIRIN [Concomitant]
     Active Substance: ASPIRIN
     Indication: Product used for unknown indication
     Route: 065
     Dates: start: 20200512
  4. PRAVASTATIN [Concomitant]
     Active Substance: PRAVASTATIN
     Indication: Cerebrovascular accident
     Route: 065
     Dates: start: 20200512
  5. Vitamin D Substances [Concomitant]
     Indication: Osteopenia
     Route: 065
     Dates: start: 2021

REACTIONS (4)
  - Medication error [Unknown]
  - Labelled drug-drug interaction issue [Recovering/Resolving]
  - Fall [Unknown]
  - Gait inability [Unknown]

NARRATIVE: CASE EVENT DATE: 20240827
